FAERS Safety Report 14971704 (Version 2)
Quarter: 2018Q2

REPORT INFORMATION
  Report Type: Report from Study
  Country: None (occurrence: US)
  Receive Date: 20180604
  Receipt Date: 20180622
  Transmission Date: 20180711
  Serious: Yes (Hospitalization)
  Sender: FDA-Public Use
  Company Number: US-ABBVIE-18K-163-2373146-00

PATIENT
  Sex: Female

DRUGS (1)
  1. HUMIRA [Suspect]
     Active Substance: ADALIMUMAB
     Indication: RHEUMATOID ARTHRITIS
     Route: 058
     Dates: start: 201708

REACTIONS (6)
  - Cholelithiasis [Unknown]
  - Headache [Unknown]
  - Swelling [Unknown]
  - Dysarthria [Unknown]
  - Dizziness [Unknown]
  - Gait disturbance [Unknown]

NARRATIVE: CASE EVENT DATE: 2018
